FAERS Safety Report 7428834-X (Version None)
Quarter: 2011Q2

REPORT INFORMATION
  Report Type: 
  Country: None (occurrence: None)
  Receive Date: 20110421
  Receipt Date: 20110323
  Transmission Date: 20111010
  Serious: Yes (Hospitalization, Other)
  Sender: FDA-Public Use
  Company Number: PHHY2011NO14349

PATIENT
  Sex: Male
  Weight: 85 kg

DRUGS (6)
  1. ATARAX [Concomitant]
     Dosage: 25 MG, TID
     Dates: start: 20100810
  2. LEPONEX [Suspect]
     Indication: SCHIZOPHRENIA
     Dosage: 150+250 MG
     Route: 048
     Dates: start: 20080118
  3. NOZINAN                                 /NET/ [Concomitant]
     Dosage: 25 MG X 2 WHEN NEEDED
  4. CIPRALEX                                /DEN/ [Concomitant]
     Dosage: 10 MG, UNK
     Route: 048
  5. SIMVASTATIN [Concomitant]
     Dosage: 40 MG, UNK
     Route: 048
  6. KREDEX [Concomitant]
     Dosage: 25 MG,
     Route: 048

REACTIONS (3)
  - PNEUMONIA [None]
  - UPPER RESPIRATORY TRACT INFECTION [None]
  - WHITE BLOOD CELL COUNT INCREASED [None]
